FAERS Safety Report 6997236-2 (Version None)
Quarter: 2010Q3

REPORT INFORMATION
  Report Type: 
  Country: None (occurrence: None)
  Receive Date: 20100918
  Receipt Date: 20090928
  Transmission Date: 20110219
  Serious: No
  Sender: FDA-Public Use
  Company Number: US-WYE-H11241709

PATIENT
  Sex: Male
  Weight: 86.26 kg

DRUGS (3)
  1. EFFEXOR XR [Suspect]
     Indication: DEPRESSION
     Dosage: AT THE HIGHEST DOSE WAS 225 MG
     Route: 048
     Dates: start: 20070101
  2. EFFEXOR XR [Suspect]
     Dosage: TRIED SEVERAL TIMES TO STOP USING IT
     Route: 048
  3. EFFEXOR XR [Suspect]
     Dosage: 37.5 MG, FREQUENCY UNKNOWN
     Route: 048

REACTIONS (18)
  - AGITATION [None]
  - ANGER [None]
  - ARTHRALGIA [None]
  - ASTHENIA [None]
  - CRYING [None]
  - DRUG WITHDRAWAL SYNDROME [None]
  - DRY MOUTH [None]
  - FATIGUE [None]
  - FEELING COLD [None]
  - HALLUCINATION, VISUAL [None]
  - HYPERHIDROSIS [None]
  - IMPAIRED DRIVING ABILITY [None]
  - IMPAIRED WORK ABILITY [None]
  - INSOMNIA [None]
  - MUSCULAR WEAKNESS [None]
  - PAIN IN EXTREMITY [None]
  - PARAESTHESIA [None]
  - VISION BLURRED [None]
